FAERS Safety Report 9301296 (Version 1)
Quarter: 2013Q2

REPORT INFORMATION
  Report Type: Spontaneous
  Country: US (occurrence: None)
  Receive Date: 20130520
  Receipt Date: 20130520
  Transmission Date: 20140414
  Serious: Yes (Hospitalization)
  Sender: FDA-Public Use
  Company Number: None

PATIENT
  Age: 59 Year
  Sex: Male
  Weight: 166 kg

DRUGS (1)
  1. CEFEPIME [Suspect]
     Indication: OSTEOMYELITIS
     Dosage: 2 GM BID IV
     Dates: start: 20130308, end: 20130404

REACTIONS (6)
  - Tubulointerstitial nephritis [None]
  - Drug eruption [None]
  - Prostatomegaly [None]
  - Kidney small [None]
  - Skin disorder [None]
  - Urticaria [None]
